FAERS Safety Report 6315667-0 (Version None)
Quarter: 2009Q3

REPORT INFORMATION
  Report Type: 
  Country: None (occurrence: None)
  Receive Date: 20090818
  Receipt Date: 20090803
  Transmission Date: 20100115
  Serious: Yes (Hospitalization)
  Sender: FDA-Public Use
  Company Number: 2008AL011733

PATIENT
  Age: 55 Year
  Sex: Female

DRUGS (9)
  1. DIGOXIN [Suspect]
     Indication: CARDIAC FAILURE
     Dosage: 0.25MG, DAILY, PO
     Route: 048
  2. TOPROL-XL [Concomitant]
  3. PROTONIX [Concomitant]
  4. ZYRTEC [Concomitant]
  5. KEFLEX [Concomitant]
  6. WELLBUTRIN [Concomitant]
  7. BEXTRA [Concomitant]
  8. LORTAB [Concomitant]
  9. ASPIRIN [Concomitant]

REACTIONS (8)
  - ATRIAL FIBRILLATION [None]
  - ATRIOVENTRICULAR BLOCK COMPLETE [None]
  - DIABETES MELLITUS [None]
  - DIARRHOEA [None]
  - INJURY [None]
  - OEDEMA [None]
  - PAIN [None]
  - PULMONARY EMBOLISM [None]
